APPROVED DRUG PRODUCT: HYDROXYZINE HYDROCHLORIDE
Active Ingredient: HYDROXYZINE HYDROCHLORIDE
Strength: 25MG
Dosage Form/Route: TABLET;ORAL
Application: A040840 | Product #003 | TE Code: AB
Applicant: NORTHSTAR HEALTHCARE HOLDINGS LTD
Approved: Mar 31, 2008 | RLD: No | RS: No | Type: RX